FAERS Safety Report 16886753 (Version 1)
Quarter: 2019Q4

REPORT INFORMATION
  Report Type: Spontaneous
  Country: CA (occurrence: CA)
  Receive Date: 20191004
  Receipt Date: 20191004
  Transmission Date: 20200122
  Serious: Yes (Other)
  Sender: FDA-Public Use
  Company Number: CA-TEVA-2019-CA-1115891

PATIENT
  Age: 20 Year
  Sex: Male

DRUGS (4)
  1. HALOPERIDOL. [Suspect]
     Active Substance: HALOPERIDOL
     Indication: VOMITING
     Dosage: 5 MILLIGRAM DAILY;
     Route: 048
  2. HALOPERIDOL. [Suspect]
     Active Substance: HALOPERIDOL
     Indication: DYSPHAGIA
  3. PANTOPRAZOLE [Concomitant]
     Active Substance: PANTOPRAZOLE
  4. STEMETIL [Concomitant]
     Active Substance: PROCHLORPERAZINE

REACTIONS (4)
  - Joint dislocation [Recovered/Resolved]
  - Hypokinesia [Recovered/Resolved]
  - Torticollis [Recovered/Resolved]
  - Dystonia [Recovered/Resolved]
